FAERS Safety Report 10151871 (Version 1)
Quarter: 2014Q2

REPORT INFORMATION
  Report Type: Spontaneous
  Country: US (occurrence: None)
  Receive Date: 20140430
  Receipt Date: 20140430
  Transmission Date: 20141212
  Serious: Yes (Death)
  Sender: FDA-Public Use
  Company Number: 2014-US-004850

PATIENT
  Age: 42 Year
  Sex: Male

DRUGS (7)
  1. CLOZAPINE [Suspect]
     Route: 048
     Dates: start: 20130322, end: 20140408
  2. WARFARIN [Concomitant]
  3. HYDROCHLOROTHIAZIDE (HYDROCHLOROTHIAZIDE) [Concomitant]
  4. ATENOLOL (ATENOLOL) [Concomitant]
  5. BENZTROPINE MESILATE (BENZATROPINE MESILATE) [Concomitant]
  6. OXCARBAZEPINE (OXCARBAZEPINE) [Concomitant]
  7. LEVETIRACETAM (LEVETORACETAM) [Concomitant]

REACTIONS (1)
  - Brain neoplasm [None]
